FAERS Safety Report 7244415-5 (Version None)
Quarter: 2011Q1

REPORT INFORMATION
  Report Type: 
  Country: None (occurrence: None)
  Receive Date: 20110125
  Receipt Date: 20110113
  Transmission Date: 20110831
  Serious: Yes (Other)
  Sender: FDA-Public Use
  Company Number: US-ROCHE-754550

PATIENT
  Sex: Female
  Weight: 92.1 kg

DRUGS (9)
  1. PACLITAXEL [Suspect]
     Dosage: CYCLE 3
     Route: 042
     Dates: start: 20110104
  2. BEVACIZUMAB [Suspect]
     Dosage: CYCLE 1
     Route: 065
  3. CARBOPLATIN [Suspect]
     Dosage: CYCLE 1
     Route: 065
  4. CARBOPLATIN [Suspect]
     Dosage: CYCLE 2
     Route: 065
  5. BEVACIZUMAB [Suspect]
     Dosage: CYCLE  2
     Route: 065
  6. CARBOPLATIN [Suspect]
     Dosage: CYCLE 3
     Route: 065
     Dates: start: 20110104
  7. PACLITAXEL [Suspect]
     Dosage: CYCLE 1
     Route: 042
  8. PACLITAXEL [Suspect]
     Dosage: CYCLE 2
     Route: 042
  9. BEVACIZUMAB [Suspect]
     Dosage: CYCLE 3
     Route: 065
     Dates: start: 20110104

REACTIONS (1)
  - EXTRAVASATION [None]
